FAERS Safety Report 9557267 (Version 2)
Quarter: 2013Q3

REPORT INFORMATION
  Report Type: Spontaneous
  Country: HU (occurrence: HU)
  Receive Date: 20130926
  Receipt Date: 20130926
  Transmission Date: 20140515
  Serious: Yes (Hospitalization)
  Sender: FDA-Public Use
  Company Number: HU-BAXTER-2013BAX030741

PATIENT
  Age: 7 Month
  Sex: Male
  Weight: 11.6 kg

DRUGS (9)
  1. ADVATE 250 IU POWDER AND SOLVENT FOR SOLUTION FOR INJECTION [Suspect]
     Indication: HAEMORRHAGE PROPHYLAXIS
     Route: 042
     Dates: start: 20130329
  2. ADVATE 250 IU POWDER AND SOLVENT FOR SOLUTION FOR INJECTION [Suspect]
     Indication: IMMUNE TOLERANCE INDUCTION
     Route: 042
     Dates: start: 20130712, end: 20130712
  3. ADVATE 250 IU POWDER AND SOLVENT FOR SOLUTION FOR INJECTION [Suspect]
     Indication: OFF LABEL USE
     Route: 042
     Dates: start: 20130713, end: 20130713
  4. ADVATE 250 IU POWDER AND SOLVENT FOR SOLUTION FOR INJECTION [Suspect]
     Route: 042
     Dates: start: 20130715, end: 20130715
  5. ADVATE 250 IU POWDER AND SOLVENT FOR SOLUTION FOR INJECTION [Suspect]
     Route: 042
     Dates: start: 20130801, end: 20130812
  6. ADVATE 250 IU POWDER AND SOLVENT FOR SOLUTION FOR INJECTION [Suspect]
     Route: 042
     Dates: start: 20130821, end: 20130821
  7. ADVATE 250 IU POWDER AND SOLVENT FOR SOLUTION FOR INJECTION [Suspect]
     Route: 042
     Dates: start: 20130822, end: 20130822
  8. ADVATE 250 IU POWDER AND SOLVENT FOR SOLUTION FOR INJECTION [Suspect]
     Route: 042
     Dates: start: 20130905, end: 20130912
  9. ADVATE 250 IU POWDER AND SOLVENT FOR SOLUTION FOR INJECTION [Suspect]
     Route: 042
     Dates: start: 20130912, end: 20130916

REACTIONS (2)
  - Factor VIII inhibition [Not Recovered/Not Resolved]
  - Therapeutic response decreased [Unknown]
